FAERS Safety Report 4299533-0 (Version None)
Quarter: 2004Q1

REPORT INFORMATION
  Report Type: 
  Country: None (occurrence: None)
  Receive Date: 20040217
  Receipt Date: 20040205
  Transmission Date: 20041129
  Serious: Yes (Other)
  Sender: FDA-Public Use
  Company Number: 2003114583

PATIENT
  Age: 52 Year
  Sex: Male

DRUGS (4)
  1. GEODON [Suspect]
     Indication: MAJOR DEPRESSION
  2. PAROXETINE HCL [Concomitant]
  3. BUPROPION HYDROCHLORIDE [Concomitant]
  4. ALL OTHER THERAPEUTIC PRODUCTS [Concomitant]

REACTIONS (1)
  - AGRANULOCYTOSIS [None]
